FAERS Safety Report 8560093-7 (Version None)
Quarter: 2012Q3

REPORT INFORMATION
  Report Type: 
  Country: None (occurrence: None)
  Receive Date: 20120802
  Receipt Date: 20120723
  Transmission Date: 20120928
  Serious: Yes (Other)
  Sender: FDA-Public Use
  Company Number: FR-ASTRAZENECA-2012SE52226

PATIENT
  Age: 767 Month
  Sex: Male

DRUGS (9)
  1. PERINDOPRIL ERBUMINE [Suspect]
     Route: 048
     Dates: start: 20110401, end: 20120601
  2. PREVISCAN [Concomitant]
     Dates: start: 20110401
  3. BISOPROLOL FUMARATE [Concomitant]
     Dates: start: 20100701
  4. CORDARONE [Concomitant]
     Dates: start: 20110401
  5. CRESTOR [Concomitant]
     Route: 048
     Dates: start: 20100701
  6. XYLOCAINE [Suspect]
     Route: 058
     Dates: start: 20120201
  7. NEXIUM [Concomitant]
     Dates: start: 20100701
  8. ASPIRIN [Concomitant]
     Dates: start: 20100701
  9. LASIX [Concomitant]
     Dates: start: 20110401

REACTIONS (1)
  - ANGIOEDEMA [None]
